FAERS Safety Report 18912705 (Version 4)
Quarter: 2023Q2

REPORT INFORMATION
  Report Type: Report from Study
  Country: US (occurrence: US)
  Receive Date: 20210219
  Receipt Date: 20230519
  Transmission Date: 20230722
  Serious: Yes (Death, Other)
  Sender: FDA-Public Use
  Company Number: US-ACADIA PHARMACEUTICALS INC.-ACA-2021-PIM-000386

PATIENT
  Age: 69 Year
  Sex: Female

DRUGS (6)
  1. NUPLAZID [Suspect]
     Active Substance: PIMAVANSERIN TARTRATE
     Indication: Parkinson^s disease
     Dosage: 34 MILLIGRAM, QD
     Route: 048
     Dates: start: 201809
  2. NUPLAZID [Suspect]
     Active Substance: PIMAVANSERIN TARTRATE
     Dosage: 34 MILLIGRAM, QD
     Route: 048
     Dates: start: 20230328, end: 20230405
  3. BUPROPION [Concomitant]
     Active Substance: BUPROPION
     Dosage: 150 MILLIGRAM XL
     Dates: start: 20210913
  4. LEVOTHYROXINE [Concomitant]
     Active Substance: LEVOTHYROXINE
     Dosage: 100 MCG
     Dates: start: 20230403
  5. SEROQUEL [Concomitant]
     Active Substance: QUETIAPINE FUMARATE
     Dosage: 25 MILLIGRAM
     Dates: start: 20220614
  6. XADAGO [Concomitant]
     Active Substance: SAFINAMIDE MESYLATE
     Dosage: 100 MILLIGRAM
     Dates: start: 20220720

REACTIONS (4)
  - Dementia [Recovered/Resolved]
  - Parkinson^s disease [Recovered/Resolved]
  - Coronavirus infection [Unknown]
  - Hallucination, visual [Not Recovered/Not Resolved]

NARRATIVE: CASE EVENT DATE: 20220722
